FAERS Safety Report 7922711-3 (Version None)
Quarter: 2011Q4

REPORT INFORMATION
  Report Type: 
  Country: None (occurrence: None)
  Receive Date: 20111117
  Receipt Date: 20110503
  Transmission Date: 20120403
  Serious: No
  Sender: FDA-Public Use
  Company Number: US-ALLERGAN-1106143US

PATIENT
  Age: 76 Year
  Sex: Male

DRUGS (3)
  1. METOPROLOL TARTRATE [Suspect]
     Indication: BLOOD PRESSURE
     Dosage: UNK
     Route: 048
  2. COMBIGAN [Suspect]
     Indication: GLAUCOMA
     Dosage: 1 GTT, BID
     Route: 047
     Dates: start: 20110401
  3. DIOVAN [Concomitant]
     Indication: BLOOD PRESSURE
     Dosage: UNK

REACTIONS (4)
  - SKIN DISCOLOURATION [None]
  - HYPOTENSION [None]
  - DIZZINESS [None]
  - HEART RATE DECREASED [None]
